FAERS Safety Report 7147835-2 (Version None)
Quarter: 2010Q4

REPORT INFORMATION
  Report Type: 
  Country: None (occurrence: None)
  Receive Date: 20101207
  Receipt Date: 20101207
  Transmission Date: 20110411
  Serious: Yes (Hospitalization)
  Sender: FDA-Public Use
  Company Number: None

PATIENT
  Sex: Female
  Weight: 68.9467 kg

DRUGS (12)
  1. NILOTINIB [Suspect]
     Indication: GASTROINTESTINAL STROMAL TUMOUR
     Dosage: 400MG BID PO
     Route: 048
     Dates: start: 20101021, end: 20101121
  2. IMATINIB MESYLATE [Suspect]
     Indication: GASTROINTESTINAL STROMAL TUMOUR
     Dosage: 400 MG DAILY PO
     Route: 048
     Dates: start: 20101021, end: 20101121
  3. MULTI-VITAMINS [Concomitant]
  4. SYMBICORT [Concomitant]
  5. FOLIC ACID [Concomitant]
  6. LOVAZA [Concomitant]
  7. Q10 [Concomitant]
  8. XOPENEX HFA [Concomitant]
  9. XOPENEX [Concomitant]
  10. CORTISONE CREAM 1% [Concomitant]
  11. BENADRYL [Concomitant]
  12. SCALPICIN 3% [Concomitant]

REACTIONS (5)
  - ABDOMINAL ABSCESS [None]
  - INFECTION [None]
  - NAUSEA [None]
  - PAIN [None]
  - VOMITING [None]
